FAERS Safety Report 8436128-9 (Version None)
Quarter: 2012Q2

REPORT INFORMATION
  Report Type: 
  Country: None (occurrence: None)
  Receive Date: 20120607
  Receipt Date: 20120607
  Transmission Date: 20120825
  Serious: Yes (Other)
  Sender: FDA-Public Use
  Company Number: None

PATIENT
  Age: 64 Year
  Sex: Male
  Weight: 102.0593 kg

DRUGS (1)
  1. METHYLPREDNISOLONE 4MG TAB [Suspect]
     Indication: INFLAMMATION
     Dosage: DOSPAK 21'S
     Dates: start: 20120529, end: 20120605

REACTIONS (5)
  - RASH [None]
  - PETECHIAE [None]
  - FLUSHING [None]
  - FEELING HOT [None]
  - PRURITUS [None]
